FAERS Safety Report 8144158-X (Version None)
Quarter: 2012Q1

REPORT INFORMATION
  Report Type: 
  Country: None (occurrence: None)
  Receive Date: 20120217
  Receipt Date: 20120214
  Transmission Date: 20120608
  Serious: Yes (Other)
  Sender: FDA-Public Use
  Company Number: US-PFIZER INC-2012040342

PATIENT
  Sex: Male
  Weight: 103.4 kg

DRUGS (4)
  1. LIPITOR [Suspect]
     Indication: BLOOD CHOLESTEROL INCREASED
     Dosage: UNK, TWO TIMES A DAY
     Route: 048
     Dates: start: 19980101
  2. PRAVASTATIN [Concomitant]
     Indication: BLOOD CHOLESTEROL INCREASED
     Dosage: UNK
  3. LIPITOR [Suspect]
     Dosage: UNK
     Route: 048
  4. LIPITOR [Suspect]
     Dosage: UNK, ONCE A DAY
     Route: 048

REACTIONS (4)
  - HYPOKINESIA [None]
  - MUSCULOSKELETAL PAIN [None]
  - ARTHRALGIA [None]
  - ARTHROPATHY [None]
